FAERS Safety Report 4618908-0 (Version None)
Quarter: 2005Q1

REPORT INFORMATION
  Report Type: 
  Country: None (occurrence: None)
  Receive Date: 20050323
  Receipt Date: 20050208
  Transmission Date: 20050727
  Serious: Yes (Hospitalization)
  Sender: FDA-Public Use
  Company Number: INT2030036

PATIENT
  Age: 61 Year
  Sex: Female

DRUGS (2)
  1. EPTIFIBATIDE INJECTABLE SOLUTION [Suspect]
     Indication: ACUTE CORONARY SYNDROME
     Dosage: SEE IMAGE
     Route: 040
  2. HEPARIN [Suspect]
     Indication: ACUTE CORONARY SYNDROME
     Dosage: 50 U/KG INTRAVENOUS BOLU
     Route: 040

REACTIONS (14)
  - ANAPHYLACTOID REACTION [None]
  - ANTI-PLATELET ANTIBODY POSITIVE [None]
  - BLOOD CREATINE PHOSPHOKINASE MB INCREASED [None]
  - CHEST PAIN [None]
  - CORONARY ARTERY OCCLUSION [None]
  - DISSEMINATED INTRAVASCULAR COAGULATION [None]
  - DRUG HYPERSENSITIVITY [None]
  - HYPERHIDROSIS [None]
  - HYPERTENSION [None]
  - INJECTION SITE HAEMORRHAGE [None]
  - NAUSEA [None]
  - PROCEDURAL HYPOTENSION [None]
  - THROMBOCYTOPENIA [None]
  - VENTRICULAR HYPERKINESIA [None]
